FAERS Safety Report 11387706 (Version 2)
Quarter: 2015Q3

REPORT INFORMATION
  Report Type: Spontaneous
  Country: FR (occurrence: FR)
  Receive Date: 20150817
  Receipt Date: 20150902
  Transmission Date: 20151125
  Serious: Yes (Other)
  Sender: FDA-Public Use
  Company Number: FR-PFIZER INC-2015262324

PATIENT
  Age: 56 Year
  Sex: Male

DRUGS (5)
  1. AZITHROMYCIN [Suspect]
     Active Substance: AZITHROMYCIN ANHYDROUS
     Dosage: 2 DF OF 250 MG, 1X/DAY
     Route: 048
     Dates: start: 20150622, end: 20150625
  2. RHINOMAXIL [Suspect]
     Active Substance: BECLOMETHASONE DIPROPIONATE
     Dosage: 1 DF, AS NEEDED
     Route: 045
     Dates: start: 20150622, end: 20150625
  3. ADVIL [Suspect]
     Active Substance: IBUPROFEN
     Dosage: 400 MG, 3X/DAY
     Route: 048
     Dates: start: 20150622, end: 20150625
  4. PRETERAX /06377001/ [Concomitant]
     Active Substance: INDAPAMIDE\PERINDOPRIL
  5. HELICIDINE [Suspect]
     Active Substance: ESCARGOT
     Dosage: 1 DF, AS NEEDED
     Route: 048
     Dates: start: 20150622, end: 20150625

REACTIONS (5)
  - Ageusia [Recovered/Resolved]
  - Paraesthesia [Unknown]
  - Anosmia [Recovered/Resolved]
  - Dysgeusia [Unknown]
  - Dry mouth [Unknown]

NARRATIVE: CASE EVENT DATE: 20150624
